FAERS Safety Report 5260803-0 (Version None)
Quarter: 2007Q1

REPORT INFORMATION
  Report Type: 
  Country: None (occurrence: None)
  Receive Date: 20061208
  Receipt Date: 20051108
  Transmission Date: 20070707
  Serious: No
  Sender: FDA-Public Use
  Company Number: 2005UW16962

PATIENT
  Sex: Female

DRUGS (2)
  1. NEXIUM [Suspect]
     Indication: GASTRITIS
     Dosage: 40 MG DAILY PO
     Route: 048
  2. NEXIUM [Suspect]
     Indication: ULCER
     Dosage: 40 MG DAILY PO
     Route: 048

REACTIONS (1)
  - BLOOD GASTRIN INCREASED [None]
